FAERS Safety Report 14128640 (Version 1)
Quarter: 2017Q4

REPORT INFORMATION
  Report Type: Spontaneous
  Country: US (occurrence: US)
  Receive Date: 20171026
  Receipt Date: 20171026
  Transmission Date: 20180321
  Serious: Yes (Hospitalization)
  Sender: FDA-Public Use
  Company Number: None

PATIENT
  Age: 63 Year
  Sex: Female
  Weight: 81 kg

DRUGS (2)
  1. HALOPERIDOL. [Concomitant]
     Active Substance: HALOPERIDOL
  2. INVEGA SUSTENNA [Suspect]
     Active Substance: PALIPERIDONE PALMITATE
     Indication: SCHIZOPHRENIA
     Dosage: ?          OTHER FREQUENCY:ONE TIME DOSE;?
     Route: 030
     Dates: start: 20170801, end: 20170801

REACTIONS (5)
  - Gait disturbance [None]
  - Drooling [None]
  - Dysphagia [None]
  - Encephalopathy [None]
  - Disorientation [None]

NARRATIVE: CASE EVENT DATE: 20170815
